FAERS Safety Report 6775885-4 (Version None)
Quarter: 2010Q2

REPORT INFORMATION
  Report Type: 
  Country: None (occurrence: None)
  Receive Date: 20100615
  Receipt Date: 20100601
  Transmission Date: 20101027
  Serious: Yes (Other)
  Sender: FDA-Public Use
  Company Number: ACO_00999_2010

PATIENT
  Sex: Male
  Weight: 77.1115 kg

DRUGS (4)
  1. AMPYRA [Suspect]
     Indication: MOBILITY DECREASED
     Dosage: 10 MG 1X ORAL
     Route: 048
     Dates: start: 20100527, end: 20100527
  2. AMPYRA [Suspect]
     Indication: MULTIPLE SCLEROSIS
     Dosage: 10 MG 1X ORAL
     Route: 048
     Dates: start: 20100527, end: 20100527
  3. LOTREL [Concomitant]
  4. ZIAC [Concomitant]

REACTIONS (5)
  - DIPLEGIA [None]
  - FALL [None]
  - FLUSHING [None]
  - KIDNEY INFECTION [None]
  - PAIN IN EXTREMITY [None]
